FAERS Safety Report 18115131 (Version 2)
Quarter: 2021Q1

REPORT INFORMATION
  Report Type: Spontaneous
  Country: US (occurrence: US)
  Receive Date: 20200805
  Receipt Date: 20210107
  Transmission Date: 20210419
  Serious: No
  Sender: FDA-Public Use
  Company Number: US-GILEAD-2020-0488125

PATIENT
  Age: 57 Year
  Sex: Male
  Weight: 117.91 kg

DRUGS (16)
  1. AMOXICILLIN. [Concomitant]
     Active Substance: AMOXICILLIN
  2. DIOVAN [Concomitant]
     Active Substance: VALSARTAN
  3. HYDROCODONE/ACETAMINOPHEN [Concomitant]
     Active Substance: ACETAMINOPHEN\HYDROCODONE
  4. VITAMINS NOS [Concomitant]
     Active Substance: VITAMINS
  5. BROMFED [Concomitant]
     Active Substance: BROMPHENIRAMINE MALEATE\DEXTROMETHORPHAN HYDROBROMIDE\PSEUDOEPHEDRINE HYDROCHLORIDE
  6. ELDERBERRY [SAMBUCUS NIGRA] [Concomitant]
  7. HYDROCHLOROTHIAZIDE. [Concomitant]
     Active Substance: HYDROCHLOROTHIAZIDE
  8. IBUPROFEN. [Concomitant]
     Active Substance: IBUPROFEN
  9. ATRIPLA [Suspect]
     Active Substance: EFAVIRENZ\EMTRICITABINE\TENOFOVIR DISOPROXIL FUMARATE
     Indication: HIV INFECTION
     Dosage: UNK
     Route: 048
     Dates: start: 2009, end: 2018
  10. ISONIAZID. [Concomitant]
     Active Substance: ISONIAZID
  11. VALSARTAN. [Concomitant]
     Active Substance: VALSARTAN
  12. PENICILLIN VK [Concomitant]
     Active Substance: PENICILLIN V POTASSIUM
  13. SULFAMETHOXAZOLE [Concomitant]
     Active Substance: SULFAMETHOXAZOLE
  14. TAMIFLU [Concomitant]
     Active Substance: OSELTAMIVIR PHOSPHATE
  15. GENVOYA [Concomitant]
     Active Substance: COBICISTAT\ELVITEGRAVIR\EMTRICITABINE\TENOFOVIR ALAFENAMIDE FUMARATE
  16. LORATADINE. [Concomitant]
     Active Substance: LORATADINE

REACTIONS (6)
  - Renal impairment [Not Recovered/Not Resolved]
  - Pain [Recovered/Resolved]
  - Emotional distress [Recovered/Resolved]
  - Anxiety [Recovered/Resolved]
  - Anhedonia [Unknown]
  - Depression [Recovered/Resolved]

NARRATIVE: CASE EVENT DATE: 201611
